FAERS Safety Report 12634373 (Version 1)
Quarter: 2016Q3

REPORT INFORMATION
  Report Type: Spontaneous
  Country: US (occurrence: US)
  Receive Date: 20160808
  Receipt Date: 20160808
  Transmission Date: 20161109
  Serious: Yes (Hospitalization, Other)
  Sender: FDA-Public Use
  Company Number: US-GLAXOSMITHKLINE-US2016GSK112750

PATIENT
  Age: 60 Year
  Sex: Female

DRUGS (13)
  1. DIGOXIN. [Suspect]
     Active Substance: DIGOXIN
     Indication: PRODUCT USED FOR UNKNOWN INDICATION
  2. AUBAGIO [Concomitant]
     Active Substance: TERIFLUNOMIDE
  3. GABAPENTIN. [Concomitant]
     Active Substance: GABAPENTIN
  4. ASPIRIN (BABY) [Concomitant]
     Active Substance: ASPIRIN
  5. MIRTAZAPINE. [Concomitant]
     Active Substance: MIRTAZAPINE
  6. ONDANSETRON [Concomitant]
     Active Substance: ONDANSETRON
  7. AMPYRA [Suspect]
     Active Substance: DALFAMPRIDINE
     Indication: GAIT DISTURBANCE
     Dosage: 10 MG, BID
     Route: 048
  8. TIZANIDINE. [Suspect]
     Active Substance: TIZANIDINE
     Indication: PRODUCT USED FOR UNKNOWN INDICATION
  9. PANTOPRAZOLE SODIUM. [Concomitant]
     Active Substance: PANTOPRAZOLE SODIUM
  10. CYMBALTA [Concomitant]
     Active Substance: DULOXETINE HYDROCHLORIDE
  11. ALBUTEROL SULFATE. [Concomitant]
     Active Substance: ALBUTEROL SULFATE
  12. COREG [Suspect]
     Active Substance: CARVEDILOL
     Indication: PRODUCT USED FOR UNKNOWN INDICATION
  13. HYDROCHLOROTHIAZIDE. [Concomitant]
     Active Substance: HYDROCHLOROTHIAZIDE

REACTIONS (6)
  - Pneumonia [Recovered/Resolved]
  - Malaise [Recovered/Resolved]
  - Shoulder operation [Recovered/Resolved]
  - Endotracheal intubation complication [Recovered/Resolved]
  - Blood pressure abnormal [Unknown]
  - Asthenia [Recovered/Resolved]

NARRATIVE: CASE EVENT DATE: 201606
